FAERS Safety Report 23306252 (Version 1)
Quarter: 2023Q4

REPORT INFORMATION
  Report Type: Spontaneous
  Country: CZ (occurrence: CZ)
  Receive Date: 20231218
  Receipt Date: 20231218
  Transmission Date: 20240110
  Serious: Yes (Other)
  Sender: FDA-Public Use
  Company Number: CZ-ABBVIE-5532459

PATIENT
  Age: 65 Year

DRUGS (2)
  1. AZACITIDINE [Suspect]
     Active Substance: AZACITIDINE
     Indication: Acute myeloid leukaemia
  2. VENETOCLAX [Suspect]
     Active Substance: VENETOCLAX
     Indication: Acute myeloid leukaemia
     Route: 048

REACTIONS (6)
  - Periorbital cellulitis [Unknown]
  - Conjunctivitis [Unknown]
  - Septic embolus [Unknown]
  - Bronchiolitis [Unknown]
  - Sinusitis [Unknown]
  - Systemic candida [Unknown]
